FAERS Safety Report 17526563 (Version 6)
Quarter: 2025Q2

REPORT INFORMATION
  Report Type: Spontaneous
  Country: US (occurrence: US)
  Receive Date: 20200311
  Receipt Date: 20250513
  Transmission Date: 20250716
  Serious: Yes (Hospitalization)
  Sender: PFIZER
  Company Number: US-PFIZER INC-2020104819

PATIENT
  Age: 80 Year
  Sex: Male
  Weight: 93.878 kg

DRUGS (12)
  1. VYNDAMAX [Suspect]
     Active Substance: TAFAMIDIS
     Indication: Cardiac disorder
     Dosage: 61 MG, 1X/DAY
     Route: 048
  2. VYNDAMAX [Suspect]
     Active Substance: TAFAMIDIS
     Indication: Cardiac amyloidosis
     Dosage: 61 MG, 1X/DAY
     Route: 048
     Dates: start: 202001
  3. VYNDAMAX [Suspect]
     Active Substance: TAFAMIDIS
     Indication: Cardiac failure congestive
  4. WARFARIN [Concomitant]
     Active Substance: WARFARIN
     Indication: Thrombosis
  5. ALPHAGAN P [Concomitant]
     Active Substance: BRIMONIDINE TARTRATE
  6. DORZOLAMIDE [Concomitant]
     Active Substance: DORZOLAMIDE
     Dosage: 2 GTT, DAILY [1 DROP DAILY BOTH EYES]
     Route: 047
  7. LATANOPROST [Concomitant]
     Active Substance: LATANOPROST
     Dosage: 2 GTT, 1X/DAY [1 DROP NIGHTLY BOTH EYES]
     Route: 047
  8. LEVOTHYROXINE [Concomitant]
     Active Substance: LEVOTHYROXINE
     Dosage: 1 TABLET DAILY
  9. POTASSIUM CHLORIDE [Concomitant]
     Active Substance: POTASSIUM CHLORIDE
     Dosage: 1 DF, DAILY
  10. ROSUVASTATIN [Concomitant]
     Active Substance: ROSUVASTATIN
     Dosage: 20 MG, ALTERNATE DAY
  11. ACETAMINOPHEN\HYDROCODONE [Concomitant]
     Active Substance: ACETAMINOPHEN\HYDROCODONE
  12. AMIODARONE [Concomitant]
     Active Substance: AMIODARONE
     Dates: start: 20200306

REACTIONS (3)
  - Oedema peripheral [Recovering/Resolving]
  - Abdominal discomfort [Unknown]
  - Weight increased [Not Recovered/Not Resolved]
